FAERS Safety Report 5096501-6 (Version None)
Quarter: 2006Q3

REPORT INFORMATION
  Report Type: 
  Country: None (occurrence: None)
  Receive Date: 20060830
  Receipt Date: 20060821
  Transmission Date: 20061208
  Serious: Yes (Other)
  Sender: FDA-Public Use
  Company Number: 228732

PATIENT
  Age: 52 Year
  Sex: Female

DRUGS (4)
  1. HERCEPTIN [Suspect]
     Indication: BREAST CANCER
  2. DOCETAXEL (DOCETAXEL) [Suspect]
     Indication: BREAST CANCER
  3. MELPHALAN (MELPHALAN) [Suspect]
     Indication: BREAST CANCER
  4. CARBOPLATIN [Suspect]
     Indication: BREAST CANCER

REACTIONS (7)
  - BONE MARROW TRANSPLANT [None]
  - COLITIS [None]
  - DEPRESSED LEVEL OF CONSCIOUSNESS [None]
  - DRUG TOXICITY [None]
  - HYPERAMMONAEMIA [None]
  - MULTI-ORGAN FAILURE [None]
  - POST PROCEDURAL COMPLICATION [None]
